FAERS Safety Report 15456816 (Version 1)
Quarter: 2018Q3

REPORT INFORMATION
  Report Type: Spontaneous
  Country: US (occurrence: US)
  Receive Date: 20180928
  Receipt Date: 20180928
  Transmission Date: 20181010
  Serious: No
  Sender: FDA-Public Use
  Company Number: None

PATIENT
  Sex: Female
  Weight: 50 kg

DRUGS (1)
  1. ARMODAFINIL 150MG [Suspect]
     Active Substance: ARMODAFINIL
     Indication: FATIGUE
     Dosage: ?          QUANTITY:1 TABLET(S);?
     Route: 048
     Dates: start: 20180217, end: 20180417

REACTIONS (5)
  - Fatigue [None]
  - Drug ineffective [None]
  - Headache [None]
  - Product physical issue [None]
  - Product substitution issue [None]

NARRATIVE: CASE EVENT DATE: 20180217
